FAERS Safety Report 4583748-8 (Version None)
Quarter: 2005Q1

REPORT INFORMATION
  Report Type: 
  Country: None (occurrence: None)
  Receive Date: 20050211
  Receipt Date: 20050201
  Transmission Date: 20050727
  Serious: Yes (Hospitalization)
  Sender: FDA-Public Use
  Company Number: 200416369BCC

PATIENT
  Age: 73 Year
  Sex: Female
  Weight: 75.2971 kg

DRUGS (7)
  1. ALEVE (CAPLET) [Suspect]
     Indication: ARTHRALGIA
     Dosage: PRN, ORAL
     Route: 048
     Dates: end: 20041216
  2. ZOCOR [Concomitant]
  3. SYNTHROID [Concomitant]
  4. PROTONIX [Concomitant]
  5. FERROUS SULFATE TAB [Concomitant]
  6. FOSAMAX [Concomitant]
  7. VIOXX [Concomitant]

REACTIONS (4)
  - BLOOD TEST ABNORMAL [None]
  - DIZZINESS POSTURAL [None]
  - GASTRIC INFECTION [None]
  - GASTROINTESTINAL ULCER HAEMORRHAGE [None]
